FAERS Safety Report 22973867 (Version 3)
Quarter: 2024Q2

REPORT INFORMATION
  Report Type: Spontaneous
  Country: CA (occurrence: CA)
  Receive Date: 20230922
  Receipt Date: 20240412
  Transmission Date: 20240716
  Serious: Yes (Hospitalization, Other)
  Sender: FDA-Public Use
  Company Number: CA-ADVANZ PHARMA-202309007911

PATIENT
  Age: 53 Year
  Sex: Female

DRUGS (2)
  1. OCALIVA [Suspect]
     Active Substance: OBETICHOLIC ACID
     Indication: Primary biliary cholangitis
     Dosage: 5 MG, QD (OCALIVA)
     Route: 048
     Dates: start: 20230606
  2. URSODIOL [Concomitant]
     Active Substance: URSODIOL
     Dosage: 1000 MG
     Dates: start: 2020

REACTIONS (3)
  - Pyelonephritis [Unknown]
  - Pruritus [Recovered/Resolved]
  - Arthralgia [Unknown]
